FAERS Safety Report 4342505-8 (Version None)
Quarter: 2004Q2

REPORT INFORMATION
  Report Type: 
  Country: None (occurrence: None)
  Receive Date: 20040421
  Receipt Date: 20040409
  Transmission Date: 20050107
  Serious: Yes (Hospitalization)
  Sender: FDA-Public Use
  Company Number: FR-BRISTOL-MYERS SQUIBB COMPANY-12559332

PATIENT
  Age: 68 Year
  Sex: Female

DRUGS (5)
  1. GLUCOPHAGE [Suspect]
     Indication: DIABETES MELLITUS NON-INSULIN-DEPENDENT
     Dosage: DURATION OF THERAPY:  ^YEARS^
     Route: 048
     Dates: end: 20040327
  2. COAPROVEL [Suspect]
     Route: 048
     Dates: start: 20040318, end: 20040327
  3. SURGAM [Suspect]
     Indication: SCIATICA
     Route: 048
     Dates: start: 20040318, end: 20040327
  4. NOVONORM [Concomitant]
     Indication: DIABETES MELLITUS NON-INSULIN-DEPENDENT
  5. MYOLASTAN [Concomitant]
     Indication: SCIATICA
     Dates: start: 20040318, end: 20040325

REACTIONS (3)
  - ATRIOVENTRICULAR BLOCK [None]
  - LACTIC ACIDOSIS [None]
  - RENAL FAILURE ACUTE [None]
